FAERS Safety Report 6085105-4 (Version None)
Quarter: 2009Q1

REPORT INFORMATION
  Report Type: 
  Country: None (occurrence: None)
  Receive Date: 20090220
  Receipt Date: 20090217
  Transmission Date: 20090719
  Serious: Yes (Other)
  Sender: FDA-Public Use
  Company Number: US-ASTRAZENECA-2009UW04483

PATIENT
  Age: 80 Year
  Sex: Female
  Weight: 94.8 kg

DRUGS (2)
  1. NEXIUM [Suspect]
     Route: 048
  2. HERBAL [Concomitant]

REACTIONS (2)
  - CARDIAC OPERATION [None]
  - GASTROOESOPHAGEAL REFLUX DISEASE [None]
